FAERS Safety Report 7522238-7 (Version None)
Quarter: 2011Q2

REPORT INFORMATION
  Report Type: 
  Country: None (occurrence: None)
  Receive Date: 20110517
  Receipt Date: 20110428
  Transmission Date: 20111010
  Serious: Yes (Other)
  Sender: FDA-Public Use
  Company Number: 2011028505

PATIENT
  Sex: Male
  Weight: 93.441 kg

DRUGS (30)
  1. PREDNISONE [Concomitant]
  2. DILTIAZEM HCL ER BEADS (DILTIAZEM) [Concomitant]
  3. QUALAQUIN (QUININE) [Concomitant]
  4. SYMBICORT 160-4.5 MCG/ACT (BUDESONIDE W/FORMOTEROL FUMARATE) [Concomitant]
  5. LEVOTHYROXINE SODIUM [Concomitant]
  6. FLUTICASONE PROPIONATE [Concomitant]
  7. HIZENTRA [Suspect]
     Indication: HYPOGAMMAGLOBULINAEMIA
     Dosage: (10 G 1X/WEEK, INFUSED IN 2 ABDOMINAL SITES SUBCUTANEOUS), (SUBCUTANEOUS)
     Route: 058
     Dates: start: 20110301
  8. HIZENTRA [Suspect]
     Indication: IMMUNODEFICIENCY COMMON VARIABLE
     Dosage: (10 G 1X/WEEK, INFUSED IN 2 ABDOMINAL SITES SUBCUTANEOUS), (SUBCUTANEOUS)
     Route: 058
     Dates: start: 20110301
  9. HIZENTRA [Suspect]
     Indication: HYPOGAMMAGLOBULINAEMIA
     Dosage: (10 G 1X/WEEK, INFUSED IN 2 ABDOMINAL SITES SUBCUTANEOUS), (SUBCUTANEOUS)
     Route: 058
     Dates: start: 20100615
  10. HIZENTRA [Suspect]
     Indication: IMMUNODEFICIENCY COMMON VARIABLE
     Dosage: (10 G 1X/WEEK, INFUSED IN 2 ABDOMINAL SITES SUBCUTANEOUS), (SUBCUTANEOUS)
     Route: 058
     Dates: start: 20100615
  11. HIZENTRA [Suspect]
  12. FLUCONAZOLE [Concomitant]
  13. HIZENTRA [Suspect]
  14. GLIPIZIDE XL (GLIPIZIDE) [Concomitant]
  15. CEFUROXIME AXETIL [Concomitant]
  16. METFORMIN HCL (METFORMIN HYDROCHLORIDE) [Concomitant]
  17. EPIPEN [Concomitant]
  18. FEXOFENADINE HCL (GALENIC /FEXOFENADINE HCL/PSEUDOEPHEDRINE/) [Concomitant]
  19. PLAVIX [Concomitant]
  20. MUCINEX [Concomitant]
  21. SINGULAIR [Concomitant]
  22. SERTRALINE HCL (SERTRALINE) [Concomitant]
  23. PANTOPRAZOLE SODIUM [Concomitant]
  24. RANITIDINE [Concomitant]
  25. XOPENEX [Concomitant]
  26. SPIRIVA [Concomitant]
  27. CRESTOR [Concomitant]
  28. MOMETASONE FUROATE 0.1% CREAM (MOMETASONE FUROATE) [Concomitant]
  29. FENOFIBRATE [Concomitant]
  30. NIASPAN [Concomitant]

REACTIONS (8)
  - DERMATITIS CONTACT [None]
  - DERMATITIS [None]
  - ECZEMA NUMMULAR [None]
  - SKIN OEDEMA [None]
  - CANDIDIASIS [None]
  - DRUG HYPERSENSITIVITY [None]
  - PNEUMONIA [None]
  - PRURITUS [None]
